FAERS Safety Report 9252432 (Version 2)
Quarter: 2013Q3

REPORT INFORMATION
  Report Type: Spontaneous
  Country: US (occurrence: US)
  Receive Date: 20130424
  Receipt Date: 20130703
  Transmission Date: 20140515
  Serious: Yes (Hospitalization, Other)
  Sender: FDA-Public Use
  Company Number: US-ASTRAZENECA-2013SE25541

PATIENT
  Age: 79 Year
  Sex: Male
  Weight: 77.1 kg

DRUGS (3)
  1. CRESTOR [Suspect]
     Indication: BLOOD CHOLESTEROL ABNORMAL
     Route: 048
     Dates: start: 2008
  2. CRESTOR [Suspect]
     Indication: BLOOD CHOLESTEROL ABNORMAL
     Dosage: 5 MG DAILY 5 DAYS A WEEK AND 2.5 MG 2 DAYS A WEEK.
     Route: 048
  3. WARFARIN [Concomitant]
     Indication: THROMBOSIS

REACTIONS (11)
  - Thrombosis [Unknown]
  - Pulmonary embolism [Unknown]
  - Deep vein thrombosis [Unknown]
  - Pulmonary mass [Unknown]
  - Prostate cancer [Unknown]
  - Skin cancer [Unknown]
  - Fall [Unknown]
  - Chest pain [Unknown]
  - Gait disturbance [Unknown]
  - Muscle spasms [Unknown]
  - Muscle spasms [Unknown]
